FAERS Safety Report 8918006 (Version 1)
Quarter: 2012Q4

REPORT INFORMATION
  Report Type: 
  Country: IT (occurrence: IT)
  Receive Date: 20121120
  Receipt Date: 20121120
  Transmission Date: 20130627
  Serious: Yes (Life-Threatening)
  Sender: FDA-Public Use
  Company Number: PHHY2012IT105288

PATIENT
  Age: 40 Year
  Sex: Female

DRUGS (1)
  1. AMOXICILLIN [Suspect]
     Indication: PHARYNGITIS
     Dosage: 2 g
     Route: 048
     Dates: start: 20121023, end: 20121024

REACTIONS (2)
  - Hypovolaemic shock [Recovered/Resolved]
  - Urticaria [Recovered/Resolved]
